FAERS Safety Report 21762125 (Version 2)
Quarter: 2023Q4

REPORT INFORMATION
  Report Type: Spontaneous
  Country: CN (occurrence: CN)
  Receive Date: 20221221
  Receipt Date: 20231006
  Transmission Date: 20240110
  Serious: Yes (Life-Threatening, Other)
  Sender: FDA-Public Use
  Company Number: CN-BAYER-2022A173209

PATIENT
  Age: 60 Year
  Sex: Female
  Weight: 60 kg

DRUGS (2)
  1. ULTRAVIST [Suspect]
     Active Substance: IOPROMIDE
     Indication: Pulmonary imaging procedure
     Dosage: 60 ML, ONCE
     Route: 042
     Dates: start: 20221208, end: 20221208
  2. ULTRAVIST [Suspect]
     Active Substance: IOPROMIDE
     Indication: Myasthenia gravis

REACTIONS (3)
  - Dyspnoea [Recovering/Resolving]
  - Cyanosis [Recovering/Resolving]
  - Blood pressure diastolic increased [Recovering/Resolving]

NARRATIVE: CASE EVENT DATE: 20221208
